FAERS Safety Report 5843705-8 (Version None)
Quarter: 2008Q3

REPORT INFORMATION
  Report Type: 
  Country: None (occurrence: None)
  Receive Date: 20080813
  Receipt Date: 20080515
  Transmission Date: 20090109
  Serious: Yes (Hospitalization)
  Sender: FDA-Public Use
  Company Number: US-BRISTOL-MYERS SQUIBB COMPANY-14139661

PATIENT
  Age: 62 Year
  Sex: Female

DRUGS (4)
  1. IXEMPRA KIT [Suspect]
     Indication: BREAST CANCER METASTATIC
     Route: 042
     Dates: start: 20080310, end: 20080310
  2. ALOXI [Concomitant]
  3. DECADRON SRC [Concomitant]
  4. ZOFRAN [Concomitant]

REACTIONS (2)
  - NAUSEA [None]
  - VOMITING [None]
